FAERS Safety Report 10415341 (Version 3)
Quarter: 2015Q2

REPORT INFORMATION
  Report Type: Spontaneous
  Country: US (occurrence: US)
  Receive Date: 20140828
  Receipt Date: 20150506
  Transmission Date: 20150821
  Serious: Yes (Other)
  Sender: FDA-Public Use
  Company Number: US-PFIZER INC-2014235797

PATIENT
  Age: 63 Year
  Sex: Female
  Weight: 100 kg

DRUGS (4)
  1. MORPHINE SULFATE. [Suspect]
     Active Substance: MORPHINE SULFATE
     Indication: PAIN
     Dosage: UNK
     Dates: start: 2005
  2. MS CONTIN [Suspect]
     Active Substance: MORPHINE SULFATE
     Indication: INTERVERTEBRAL DISC PROTRUSION
     Dosage: 60 MG, 2X/DAY
     Dates: start: 201402, end: 2014
  3. MORPHINE SULFATE. [Suspect]
     Active Substance: MORPHINE SULFATE
     Indication: INTERVERTEBRAL DISC PROTRUSION
     Dosage: UNK
     Dates: start: 201402, end: 2014
  4. MS CONTIN [Suspect]
     Active Substance: MORPHINE SULFATE
     Indication: PAIN
     Dosage: UNK MG, 2X/DAY
     Dates: start: 2005

REACTIONS (14)
  - Hyperhidrosis [Unknown]
  - Haemorrhage [Unknown]
  - Drug ineffective [Not Recovered/Not Resolved]
  - Restlessness [Unknown]
  - Abdominal distension [Unknown]
  - Hypertension [Unknown]
  - Sleep disorder [Unknown]
  - Pyrexia [Unknown]
  - Activities of daily living impaired [Not Recovered/Not Resolved]
  - Wheezing [Unknown]
  - Malaise [Unknown]
  - Diarrhoea [Unknown]
  - Constipation [Unknown]
  - Cough [Unknown]

NARRATIVE: CASE EVENT DATE: 2014
